FAERS Safety Report 10142094 (Version 1)
Quarter: 2014Q2

REPORT INFORMATION
  Report Type: Spontaneous
  Country: US (occurrence: US)
  Receive Date: 20140429
  Receipt Date: 20140429
  Transmission Date: 20141212
  Serious: Yes (Other)
  Sender: FDA-Public Use
  Company Number: US-PFIZER INC-2014113867

PATIENT
  Age: 58 Year
  Sex: Male

DRUGS (1)
  1. CLINDAMYCIN HCL [Suspect]
     Indication: PROPHYLAXIS
     Dosage: 600 MG, DAILY
     Route: 048

REACTIONS (3)
  - Colitis [Recovered/Resolved]
  - Proctalgia [Recovered/Resolved]
  - Diarrhoea haemorrhagic [Recovered/Resolved]
